FAERS Safety Report 8843651 (Version 2)
Quarter: 2015Q3

REPORT INFORMATION
  Report Type: Report from Study
  Country: US (occurrence: US)
  Receive Date: 20121016
  Receipt Date: 20150819
  Transmission Date: 20151125
  Serious: Yes (Hospitalization, Other)
  Sender: FDA-Public Use
  Company Number: US-ROCHE-1129034

PATIENT
  Age: 15 Year
  Sex: Male

DRUGS (21)
  1. PROGRAF [Concomitant]
     Active Substance: TACROLIMUS\TACROLIMUS ANHYDROUS
     Dosage: 4 MG/5 MG
     Route: 065
  2. NUTROPIN [Suspect]
     Active Substance: SOMATROPIN
     Indication: AZOTAEMIA
     Route: 058
  3. METAMUCIL [Concomitant]
     Active Substance: PLANTAGO SEED
     Dosage: 1.5 TAB
     Route: 065
  4. TYLENOL [Concomitant]
     Active Substance: ACETAMINOPHEN
  5. NUTROPIN [Suspect]
     Active Substance: SOMATROPIN
     Route: 058
  6. NEPHROVITS [Concomitant]
     Route: 065
  7. CALCIUM CARBONATE. [Concomitant]
     Active Substance: CALCIUM CARBONATE
     Dosage: 1 -1- 2
     Route: 065
  8. VITAMIN C [Concomitant]
     Active Substance: ASCORBIC ACID
     Route: 065
  9. SYNTHROID [Concomitant]
     Active Substance: LEVOTHYROXINE SODIUM
     Route: 065
  10. KAYEXALATE [Concomitant]
     Active Substance: SODIUM POLYSTYRENE SULFONATE
     Route: 065
  11. PROZAC [Concomitant]
     Active Substance: FLUOXETINE HYDROCHLORIDE
     Route: 065
  12. NUTROPIN [Suspect]
     Active Substance: SOMATROPIN
     Indication: CHRONIC KIDNEY DISEASE
     Route: 058
  13. EPOGEN [Concomitant]
     Active Substance: ERYTHROPOIETIN
     Dosage: 3000 U
     Route: 065
  14. NUTROPIN [Suspect]
     Active Substance: SOMATROPIN
     Route: 058
  15. PREVACID [Concomitant]
     Active Substance: LANSOPRAZOLE
     Route: 065
  16. NUTROPIN [Suspect]
     Active Substance: SOMATROPIN
     Route: 058
  17. DAPSONE. [Concomitant]
     Active Substance: DAPSONE
     Route: 065
  18. ADDERALL [Concomitant]
     Active Substance: AMPHETAMINE ASPARTATE\AMPHETAMINE SULFATE\DEXTROAMPHETAMINE SACCHARATE\DEXTROAMPHETAMINE SULFATE
     Route: 065
  19. ASTELIN (UNITED STATES) [Concomitant]
     Route: 065
  20. BROMFED (BROMPHENIRAMINE MALEATE, PSEUDOEPHEDRINE HCL, DEXTROMETHORPHA [Concomitant]
     Route: 065
  21. ROCALTROL [Concomitant]
     Active Substance: CALCITRIOL
     Route: 065

REACTIONS (7)
  - Epiphysiolysis [Unknown]
  - Peritonitis [Unknown]
  - Growth retardation [Unknown]
  - Upper respiratory tract infection [Recovered/Resolved]
  - Pain [Unknown]
  - Abdominal pain [Unknown]
  - Chronic kidney disease [Unknown]

NARRATIVE: CASE EVENT DATE: 20011122
